FAERS Safety Report 23114292 (Version 1)
Quarter: 2023Q4

REPORT INFORMATION
  Report Type: Spontaneous
  Country: SK (occurrence: SK)
  Receive Date: 20231027
  Receipt Date: 20231027
  Transmission Date: 20240109
  Serious: Yes (Other)
  Sender: FDA-Public Use
  Company Number: SK-BAYER-2023A149245

PATIENT
  Age: 73 Year
  Sex: Female

DRUGS (1)
  1. FINERENONE [Suspect]
     Active Substance: FINERENONE
     Dosage: UNK
     Dates: start: 202304

REACTIONS (6)
  - Urine albumin/creatinine ratio decreased [None]
  - Blood creatinine increased [None]
  - Dyspepsia [None]
  - Decreased appetite [None]
  - Abdominal pain upper [None]
  - Diarrhoea [None]

NARRATIVE: CASE EVENT DATE: 20230101
